FAERS Safety Report 19282561 (Version 3)
Quarter: 2024Q1

REPORT INFORMATION
  Report Type: Other
  Country: CA (occurrence: CA)
  Receive Date: 20210521
  Receipt Date: 20240214
  Transmission Date: 20240410
  Serious: Yes (Hospitalization, Other)
  Sender: FDA-Public Use
  Company Number: CA-APOTEX-2021AP012088

PATIENT
  Age: 40 Year
  Sex: Male

DRUGS (83)
  1. GABAPENTIN [Suspect]
     Active Substance: GABAPENTIN
     Indication: Schizophrenia
     Dosage: 600 MILLIGRAM, QD
     Route: 065
  2. GABAPENTIN [Suspect]
     Active Substance: GABAPENTIN
     Indication: Affective disorder
     Dosage: 1800 MILLIGRAM
     Route: 065
  3. GABAPENTIN [Suspect]
     Active Substance: GABAPENTIN
     Dosage: UNK
     Route: 065
  4. GABAPENTIN [Suspect]
     Active Substance: GABAPENTIN
     Dosage: 600 MILLIGRAM
     Route: 065
  5. TRIFLUOPERAZINE [Suspect]
     Active Substance: TRIFLUOPERAZINE HYDROCHLORIDE
     Indication: Psychotic disorder
     Dosage: 50 MILLIGRAM, QD
     Route: 065
  6. TRIFLUOPERAZINE [Suspect]
     Active Substance: TRIFLUOPERAZINE HYDROCHLORIDE
     Indication: Schizophrenia
     Dosage: 5 MILLIGRAM
     Route: 065
  7. TRIFLUOPERAZINE [Suspect]
     Active Substance: TRIFLUOPERAZINE HYDROCHLORIDE
     Dosage: UNK
     Route: 065
  8. RISPERIDONE [Suspect]
     Active Substance: RISPERIDONE
     Indication: Psychotic disorder
     Dosage: 3 MILLIGRAM, QD
     Route: 065
  9. RISPERIDONE [Suspect]
     Active Substance: RISPERIDONE
     Indication: Schizophrenia
     Dosage: 4 MILLIGRAM, QD
     Route: 065
  10. RISPERIDONE [Suspect]
     Active Substance: RISPERIDONE
     Dosage: 8 MILLIGRAM, QD
     Route: 065
  11. QUETIAPINE [Suspect]
     Active Substance: QUETIAPINE
     Indication: Psychotic disorder
     Dosage: 600 MILLIGRAM, QD
     Route: 048
  12. QUETIAPINE [Suspect]
     Active Substance: QUETIAPINE
     Indication: Schizophrenia
     Dosage: 600 MILLIGRAM
     Route: 048
  13. QUETIAPINE [Suspect]
     Active Substance: QUETIAPINE
     Dosage: UNK
     Route: 048
  14. PERPHENAZINE [Suspect]
     Active Substance: PERPHENAZINE
     Indication: Psychotic disorder
     Dosage: 32 MILLIGRAM, QD
     Route: 065
  15. PERPHENAZINE [Suspect]
     Active Substance: PERPHENAZINE
     Indication: Schizophrenia
     Dosage: 32 MILLIGRAM
     Route: 065
  16. PERPHENAZINE [Suspect]
     Active Substance: PERPHENAZINE
     Dosage: UNK
     Route: 065
  17. OLANZAPINE [Suspect]
     Active Substance: OLANZAPINE
     Indication: Psychotic disorder
     Dosage: 40 MILLIGRAM, QD
     Route: 065
  18. OLANZAPINE [Suspect]
     Active Substance: OLANZAPINE
     Indication: Schizophrenia
     Dosage: 20 MILLIGRAM, QD
     Route: 065
  19. OLANZAPINE [Suspect]
     Active Substance: OLANZAPINE
     Dosage: 15 MILLIGRAM, QD
     Route: 065
  20. LOXAPINE [Suspect]
     Active Substance: LOXAPINE
     Indication: Psychotic disorder
     Dosage: 50 MILLIGRAM, QD
     Route: 065
  21. LOXAPINE [Suspect]
     Active Substance: LOXAPINE
     Indication: Schizophrenia
     Dosage: 75 MILLIGRAM, QD
     Route: 065
  22. LOXAPINE [Suspect]
     Active Substance: LOXAPINE
     Dosage: 200 MILLIGRAM, QD
     Route: 065
  23. LOXAPINE [Suspect]
     Active Substance: LOXAPINE
     Dosage: UNK
     Route: 065
  24. HALOPERIDOL [Suspect]
     Active Substance: HALOPERIDOL
     Indication: Psychotic disorder
     Dosage: 5 MILLIGRAM, QD
     Route: 065
  25. HALOPERIDOL [Suspect]
     Active Substance: HALOPERIDOL
     Indication: Schizophrenia
     Dosage: 5 MILLIGRAM
     Route: 065
  26. HALOPERIDOL [Suspect]
     Active Substance: HALOPERIDOL
     Dosage: 6 MILLIGRAM
     Route: 065
  27. CLOZAPINE [Suspect]
     Active Substance: CLOZAPINE
     Indication: Psychotic disorder
     Dosage: 350 MILLIGRAM, QD
     Route: 048
  28. CLOZAPINE [Suspect]
     Active Substance: CLOZAPINE
     Indication: Schizophrenia
     Dosage: 350 MILLIGRAM
     Route: 048
  29. CLOZAPINE [Suspect]
     Active Substance: CLOZAPINE
     Dosage: 350 MILLIGRAM, QD
     Route: 048
  30. CLOMIPRAMINE [Suspect]
     Active Substance: CLOMIPRAMINE
     Indication: Schizophrenia
     Dosage: 250 MILLIGRAM
     Route: 065
  31. CITALOPRAM [Suspect]
     Active Substance: CITALOPRAM HYDROBROMIDE
     Indication: Schizophrenia
     Dosage: 250 MILLIGRAM
     Route: 065
  32. CITALOPRAM [Suspect]
     Active Substance: CITALOPRAM HYDROBROMIDE
     Indication: Depression
     Dosage: 80 MILLIGRAM, QD
     Route: 065
  33. CITALOPRAM [Suspect]
     Active Substance: CITALOPRAM HYDROBROMIDE
     Dosage: UNK
     Route: 065
  34. CITALOPRAM [Suspect]
     Active Substance: CITALOPRAM HYDROBROMIDE
     Dosage: 80 MILLIGRAM
     Route: 065
  35. CITALOPRAM [Suspect]
     Active Substance: CITALOPRAM HYDROBROMIDE
     Dosage: 250 MILLIGRAM
     Route: 065
  36. ARIPIPRAZOLE [Suspect]
     Active Substance: ARIPIPRAZOLE
     Indication: Schizophrenia
     Dosage: 30 MILLIGRAM, QD
     Route: 065
  37. ARIPIPRAZOLE [Suspect]
     Active Substance: ARIPIPRAZOLE
     Indication: Psychotherapy
     Dosage: UNK
     Route: 065
  38. FLUOXETINE [Suspect]
     Active Substance: FLUOXETINE HYDROCHLORIDE
     Indication: Schizophrenia
     Dosage: 80 MILLIGRAM, QD
     Route: 065
  39. FLUOXETINE [Suspect]
     Active Substance: FLUOXETINE HYDROCHLORIDE
     Indication: Depression
     Dosage: UNK
     Route: 065
  40. LITHIUM [Suspect]
     Active Substance: LITHIUM
     Indication: Schizophrenia
     Dosage: 1050 MILLIGRAM, QD
     Route: 065
  41. LITHIUM [Suspect]
     Active Substance: LITHIUM
     Indication: Affective disorder
     Dosage: 1800 MILLIGRAM, QD
     Route: 065
  42. LITHIUM [Suspect]
     Active Substance: LITHIUM
     Dosage: 2400 MILLIGRAM, QD
     Route: 065
  43. LITHIUM [Suspect]
     Active Substance: LITHIUM
     Dosage: 1050 MILLIGRAM
     Route: 065
  44. LITHIUM [Suspect]
     Active Substance: LITHIUM
     Dosage: 1800 MILLIGRAM
     Route: 065
  45. LITHIUM [Suspect]
     Active Substance: LITHIUM
     Dosage: UNK
     Route: 065
  46. LITHIUM [Suspect]
     Active Substance: LITHIUM
     Dosage: 2400 MILLIGRAM
     Route: 065
  47. VALPROIC ACID [Suspect]
     Active Substance: VALPROIC ACID
     Indication: Schizophrenia
     Dosage: 1000 MILLIGRAM
     Route: 048
  48. AMISULPRIDE [Suspect]
     Active Substance: AMISULPRIDE
     Indication: Schizophrenia
     Dosage: 30 MILLIGRAM
     Route: 065
  49. AMISULPRIDE [Suspect]
     Active Substance: AMISULPRIDE
     Indication: Psychotherapy
     Dosage: 1200 MILLIGRAM
     Route: 065
  50. AMISULPRIDE [Suspect]
     Active Substance: AMISULPRIDE
     Dosage: UNK
     Route: 065
  51. HALOPERIDOL DECANOATE [Suspect]
     Active Substance: HALOPERIDOL DECANOATE
     Indication: Schizophrenia
     Dosage: 5 MILLIGRAM
     Route: 065
  52. HALOPERIDOL DECANOATE [Suspect]
     Active Substance: HALOPERIDOL DECANOATE
     Dosage: 5 MILLIGRAM
     Route: 030
  53. OLANZAPINE [Suspect]
     Active Substance: OLANZAPINE
     Indication: Schizophrenia
     Dosage: 15 MILLIGRAM
     Route: 065
  54. ZIPRASIDONE [Suspect]
     Active Substance: ZIPRASIDONE
     Dosage: 40 MILLIGRAM
     Route: 065
  55. VALPROATE SODIUM [Suspect]
     Active Substance: VALPROATE SODIUM
     Indication: Schizophrenia
     Dosage: UNK
     Route: 065
  56. VALPROATE SODIUM [Suspect]
     Active Substance: VALPROATE SODIUM
     Dosage: 1000 MILLIGRAM
     Route: 048
  57. VALPROATE SODIUM [Suspect]
     Active Substance: VALPROATE SODIUM
     Dosage: 1250 MILLIGRAM
     Route: 065
  58. FLUPENTIXOL [Suspect]
     Active Substance: FLUPENTIXOL
     Indication: Schizophrenia
     Dosage: 6 MILLIGRAM
     Route: 065
  59. FLUPENTIXOL [Suspect]
     Active Substance: FLUPENTIXOL
     Indication: Psychotic disorder
     Dosage: 60 MILLIGRAM, QD
     Route: 065
  60. FLUPENTIXOL [Suspect]
     Active Substance: FLUPENTIXOL
     Dosage: UNK
     Route: 065
  61. FLUPENTIXOL [Suspect]
     Active Substance: FLUPENTIXOL
     Dosage: 80 MILLIGRAM
     Route: 065
  62. SAPHRIS [Suspect]
     Active Substance: ASENAPINE MALEATE
     Indication: Schizophrenia
     Dosage: 100 MILLIGRAM
     Route: 048
  63. SAPHRIS [Suspect]
     Active Substance: ASENAPINE MALEATE
     Indication: Psychotic disorder
     Dosage: 600 MILLIGRAM
     Route: 048
  64. SAPHRIS [Suspect]
     Active Substance: ASENAPINE MALEATE
     Dosage: UNK
     Route: 065
  65. THIORIDAZINE [Suspect]
     Active Substance: THIORIDAZINE
     Indication: Schizophrenia
     Dosage: UNK
     Route: 048
  66. THIORIDAZINE [Suspect]
     Active Substance: THIORIDAZINE
     Indication: Psychotic disorder
     Dosage: UNK
     Route: 065
  67. LOXAPINE SUCCINATE [Suspect]
     Active Substance: LOXAPINE SUCCINATE
     Indication: Schizophrenia
     Dosage: 50 MILLIGRAM
     Route: 065
  68. LOXAPINE SUCCINATE [Suspect]
     Active Substance: LOXAPINE SUCCINATE
     Dosage: 75 MILLIGRAM
     Route: 065
  69. LOXAPINE SUCCINATE [Suspect]
     Active Substance: LOXAPINE SUCCINATE
     Dosage: 200 MILLIGRAM
     Route: 065
  70. ZELDOX [Suspect]
     Active Substance: ZIPRASIDONE
     Indication: Schizophrenia
     Dosage: 100 MILLIGRAM, QD
     Route: 048
  71. ZELDOX [Suspect]
     Active Substance: ZIPRASIDONE
     Indication: Psychotic disorder
     Dosage: UNK
     Route: 048
  72. ZELDOX [Suspect]
     Active Substance: ZIPRASIDONE
     Dosage: 100 MILLIGRAM
     Route: 065
  73. ABILIFY [Suspect]
     Active Substance: ARIPIPRAZOLE
     Indication: Schizophrenia
     Dosage: UNK
     Route: 065
  74. ABILIFY [Suspect]
     Active Substance: ARIPIPRAZOLE
     Dosage: 30 MILLIGRAM
     Route: 065
  75. ZIPRASIDONE MESYLATE [Suspect]
     Active Substance: ZIPRASIDONE MESYLATE
     Indication: Schizophrenia
     Dosage: UNK
     Route: 065
  76. ZIPRASIDONE MESYLATE [Suspect]
     Active Substance: ZIPRASIDONE MESYLATE
     Dosage: 100 MILLIGRAM
     Route: 048
  77. ARIPIPRAZOLE [Suspect]
     Active Substance: ARIPIPRAZOLE
     Indication: Schizophrenia
     Dosage: 30 MILLIGRAM
     Route: 065
  78. RISPERIDONE [Suspect]
     Active Substance: RISPERIDONE
     Indication: Schizophrenia
     Dosage: 8 MILLIGRAM, QD
     Route: 065
  79. RISPERIDONE [Suspect]
     Active Substance: RISPERIDONE
     Dosage: 3 MILLIGRAM
     Route: 065
  80. RISPERIDONE [Suspect]
     Active Substance: RISPERIDONE
     Dosage: 4 MILLIGRAM
     Route: 065
  81. OLANZAPINE [Suspect]
     Active Substance: OLANZAPINE
     Indication: Schizophrenia
     Dosage: 15 MILLIGRAM
     Route: 065
  82. OLANZAPINE [Suspect]
     Active Substance: OLANZAPINE
     Indication: Psychotic disorder
     Dosage: 20 MILLIGRAM
     Route: 065
  83. OLANZAPINE [Suspect]
     Active Substance: OLANZAPINE
     Dosage: 40 MILLIGRAM, QD
     Route: 065

REACTIONS (22)
  - Antipsychotic drug level below therapeutic [Unknown]
  - Therapeutic product effect variable [Unknown]
  - Product use in unapproved indication [Unknown]
  - Toxicity to various agents [Unknown]
  - Prescribed overdose [Unknown]
  - Off label use [Unknown]
  - Disinhibition [Unknown]
  - Euphoric mood [Unknown]
  - Akathisia [Unknown]
  - Dyslipidaemia [Unknown]
  - Irritability [Unknown]
  - Obsessive-compulsive disorder [Unknown]
  - Schizoaffective disorder [Unknown]
  - Obesity [Unknown]
  - Suicide attempt [Unknown]
  - Increased appetite [Unknown]
  - Hypertension [Unknown]
  - Weight increased [Unknown]
  - Leukopenia [Unknown]
  - Leukaemia [Unknown]
  - Therapeutic product effect incomplete [Unknown]
  - Drug ineffective [Unknown]
